FAERS Safety Report 14206041 (Version 1)
Quarter: 2017Q4

REPORT INFORMATION
  Report Type: Spontaneous
  Country: JP (occurrence: JP)
  Receive Date: 20171120
  Receipt Date: 20171120
  Transmission Date: 20180321
  Serious: Yes (Hospitalization)
  Sender: FDA-Public Use
  Company Number: JP-SA-2017SA228017

PATIENT

DRUGS (4)
  1. MYSLEE [Suspect]
     Active Substance: ZOLPIDEM TARTRATE
     Indication: PRODUCT USED FOR UNKNOWN INDICATION
     Route: 048
  2. MYSLEE [Suspect]
     Active Substance: ZOLPIDEM TARTRATE
     Indication: INTENTIONAL OVERDOSE
     Route: 048
  3. MYSLEE [Suspect]
     Active Substance: ZOLPIDEM TARTRATE
     Indication: INTENTIONAL OVERDOSE
     Route: 048
  4. MYSLEE [Suspect]
     Active Substance: ZOLPIDEM TARTRATE
     Indication: PRODUCT USED FOR UNKNOWN INDICATION
     Route: 048

REACTIONS (2)
  - Intentional overdose [Unknown]
  - Seizure [Unknown]
